FAERS Safety Report 8862190 (Version 1)
Quarter: 2012Q4

REPORT INFORMATION
  Report Type: 
  Country: US (occurrence: US)
  Receive Date: 20121026
  Receipt Date: 20121026
  Transmission Date: 20130627
  Serious: No
  Sender: FDA-Public Use
  Company Number: US-009507513-1210USA002542

PATIENT

DRUGS (1)
  1. IMPLANON [Suspect]
     Dosage: UNK

REACTIONS (3)
  - Medical device complication [Unknown]
  - No adverse event [Unknown]
  - Product quality issue [Unknown]
